FAERS Safety Report 6565254-4 (Version None)
Quarter: 2010Q1

REPORT INFORMATION
  Report Type: 
  Country: None (occurrence: None)
  Receive Date: 20100201
  Receipt Date: 20100126
  Transmission Date: 20100710
  Serious: Yes (Other)
  Sender: FDA-Public Use
  Company Number: US-ELI_LILLY_AND_COMPANY-US200912004362

PATIENT
  Sex: Male

DRUGS (2)
  1. GEMZAR [Suspect]
     Dates: end: 20091019
  2. GEMZAR [Suspect]
     Dosage: UNK, UNK
     Dates: start: 20091215

REACTIONS (1)
  - CYSTOPROSTATECTOMY [None]
